FAERS Safety Report 11126385 (Version 5)
Quarter: 2015Q3

REPORT INFORMATION
  Report Type: Report from Study
  Country: CO (occurrence: CO)
  Receive Date: 20150520
  Receipt Date: 20150731
  Transmission Date: 20151125
  Serious: Yes (Death, Hospitalization, Other)
  Sender: FDA-Public Use
  Company Number: CO-BAYER-2015-222735

PATIENT
  Age: 69 Year
  Sex: Male

DRUGS (1)
  1. NEXAVAR [Suspect]
     Active Substance: SORAFENIB
     Indication: HEPATOCELLULAR CARCINOMA
     Dosage: 400 MG, QD
     Route: 048
     Dates: start: 20150410

REACTIONS (12)
  - Pruritus generalised [Not Recovered/Not Resolved]
  - Malaise [None]
  - Hepatocellular carcinoma [Fatal]
  - Renal failure [Not Recovered/Not Resolved]
  - Medication error [None]
  - Anaemia [Recovered/Resolved]
  - Amnesia [None]
  - Dry skin [Not Recovered/Not Resolved]
  - Palmar-plantar erythrodysaesthesia syndrome [Not Recovered/Not Resolved]
  - Blood potassium increased [Not Recovered/Not Resolved]
  - Asthenia [None]
  - Off label use [None]

NARRATIVE: CASE EVENT DATE: 20150420
